FAERS Safety Report 18354610 (Version 1)
Quarter: 2020Q4

REPORT INFORMATION
  Report Type: Report from Study
  Country: DE (occurrence: DE)
  Receive Date: 20201007
  Receipt Date: 20201007
  Transmission Date: 20210114
  Serious: Yes (Hospitalization)
  Sender: FDA-Public Use
  Company Number: DE-TAKEDA-2019TUS063729

PATIENT
  Age: 19 Year
  Sex: Female
  Weight: 77 kg

DRUGS (4)
  1. PREDNISOLONE. [Concomitant]
     Active Substance: PREDNISOLONE
     Indication: CROHN^S DISEASE
     Dosage: 50 MILLIGRAM, QD
     Dates: start: 20191020
  2. VITAMIN D NOS [Concomitant]
     Active Substance: VITAMIN D NOS
     Indication: CROHN^S DISEASE
     Dosage: 10000 INTERNATIONAL UNIT, 1/WEEK
  3. VEDOLIZUMAB [Suspect]
     Active Substance: VEDOLIZUMAB
     Indication: CROHN^S DISEASE
     Dosage: 300 MILLIGRAM
     Route: 042
     Dates: start: 201908, end: 201910
  4. NEUREXAN [Concomitant]
     Active Substance: HOMEOPATHICS
     Indication: NERVOUSNESS
     Dosage: UNK UNK, QD

REACTIONS (2)
  - Drug ineffective [Unknown]
  - Crohn^s disease [Not Recovered/Not Resolved]

NARRATIVE: CASE EVENT DATE: 20191020
